FAERS Safety Report 14515131 (Version 1)
Quarter: 2018Q1

REPORT INFORMATION
  Report Type: Spontaneous
  Country: PT (occurrence: PT)
  Receive Date: 20180210
  Receipt Date: 20180210
  Transmission Date: 20180509
  Serious: Yes (Other)
  Sender: FDA-Public Use
  Company Number: PT-BRISTOL-MYERS SQUIBB COMPANY-BMS-2018-011298

PATIENT
  Age: 47 Year
  Sex: Female

DRUGS (2)
  1. NIVOLUMAB [Suspect]
     Active Substance: NIVOLUMAB
     Indication: METASTATIC MALIGNANT MELANOMA
     Dosage: 3 MG/KG, Q2WK
     Route: 065
     Dates: start: 201603
  2. LEVOTHYROXINE. [Concomitant]
     Active Substance: LEVOTHYROXINE
     Indication: HYPOTHYROIDISM
     Dosage: 75 ?G, UNK
     Route: 065

REACTIONS (9)
  - Malignant neoplasm progression [Unknown]
  - Neutropenia [Unknown]
  - Abdominal pain upper [Unknown]
  - Asthenia [Unknown]
  - Ovarian cyst [Unknown]
  - Diarrhoea [Unknown]
  - Pyrexia [Unknown]
  - Hepatotoxicity [Unknown]
  - Arthralgia [Unknown]
